FAERS Safety Report 15541365 (Version 1)
Quarter: 2018Q4

REPORT INFORMATION
  Report Type: Spontaneous
  Country: FR (occurrence: FR)
  Receive Date: 20181023
  Receipt Date: 20181023
  Transmission Date: 20190205
  Serious: Yes (Hospitalization)
  Sender: FDA-Public Use
  Company Number: FR-PFIZER INC-2018414043

PATIENT
  Age: 29 Year
  Sex: Female

DRUGS (27)
  1. INEXIUM [ESOMEPRAZOLE MAGNESIUM] [Concomitant]
     Dosage: UNK
  2. LEVOTHYROX [Concomitant]
     Active Substance: LEVOTHYROXINE
     Dosage: UNK
  3. VENTOLINE [SALBUTAMOL SULFATE] [Concomitant]
     Active Substance: ALBUTEROL SULFATE
     Dosage: UNK
  4. LAROXYL [Suspect]
     Active Substance: AMITRIPTYLINE HYDROCHLORIDE
     Indication: PAIN
     Dosage: 1 DF, 1X/DAY
     Route: 048
     Dates: start: 20180903
  5. EFFIZINC [Concomitant]
     Active Substance: ZINC GLUCONATE
     Dosage: UNK
  6. ALDACTONE [Concomitant]
     Active Substance: SPIRONOLACTONE
     Dosage: UNK
  7. ALLERGODIL [Concomitant]
     Active Substance: AZELASTINE
     Dosage: UNK
  8. XYZALL [Concomitant]
     Active Substance: LEVOCETIRIZINE DIHYDROCHLORIDE
     Dosage: UNK
  9. HYDROCORTISONE. [Concomitant]
     Active Substance: HYDROCORTISONE
     Dosage: UNK
  10. DOLIPRANE [Concomitant]
     Active Substance: ACETAMINOPHEN
     Dosage: UNK
  11. SEREVENT DISKUS [Concomitant]
     Active Substance: SALMETEROL XINAFOATE
     Dosage: UNK
  12. METEOSPASMYL (ALVERINE CITRATE\DIMETHICONE) [Concomitant]
     Active Substance: ALVERINE CITRATE\DIMETHICONE
     Dosage: UNK
  13. SKENAN [Suspect]
     Active Substance: MORPHINE SULFATE
     Indication: PAIN
     Dosage: D1 60 MG AND D2 90 MG
     Route: 048
     Dates: start: 20180903
  14. DUPHALAC [Concomitant]
     Active Substance: LACTULOSE
     Dosage: UNK
  15. CERAZETTE [DESOGESTREL] [Concomitant]
     Dosage: UNK
  16. DELURSAN [Concomitant]
     Active Substance: URSODIOL
     Dosage: UNK
  17. RUBOZINC [Concomitant]
     Active Substance: ZINC GLUCONATE
     Dosage: UNK
  18. SINGULAIR [Concomitant]
     Active Substance: MONTELUKAST SODIUM
     Dosage: UNK
  19. PRIMPERAN [Concomitant]
     Active Substance: METOCLOPRAMIDE HYDROCHLORIDE
     Dosage: UNK
  20. LASILIX [FUROSEMIDE] [Concomitant]
     Dosage: UNK
  21. SPASFON [PHLOROGLUCINOL;TRIMETHYLPHLOROGLUCINOL] [Concomitant]
     Dosage: UNK
  22. DEBRIDAT [TRIMEBUTINE MALEATE] [Concomitant]
     Dosage: UNK
  23. NEURONTIN [Suspect]
     Active Substance: GABAPENTIN
     Indication: NEURALGIA
     Dosage: 6 DF, 1X/DAY
     Route: 048
     Dates: start: 20180903
  24. DICODIN [Suspect]
     Active Substance: DIHYDROCODEINE
     Indication: PAIN
     Dosage: 2 DF, 1X/DAY
     Route: 048
  25. TERCIAN [CYAMEMAZINE TARTRATE] [Concomitant]
     Dosage: UNK
  26. TANGANIL [Concomitant]
     Active Substance: ACETYLLEUCINE
     Dosage: UNK
  27. DIFFU K [Concomitant]
     Active Substance: POTASSIUM CHLORIDE
     Dosage: UNK

REACTIONS (4)
  - Dyspnoea [Recovered/Resolved]
  - Somnolence [Recovered/Resolved]
  - Hypotension [Recovered/Resolved]
  - Miosis [Recovered/Resolved]

NARRATIVE: CASE EVENT DATE: 20180904
